FAERS Safety Report 5823636-X (Version None)
Quarter: 2008Q3

REPORT INFORMATION
  Report Type: 
  Country: None (occurrence: None)
  Receive Date: 20080725
  Receipt Date: 20080715
  Transmission Date: 20090109
  Serious: Yes (Hospitalization)
  Sender: FDA-Public Use
  Company Number: GB-PFIZER INC-2007080597

PATIENT

DRUGS (1)
  1. CHANTIX [Suspect]
     Route: 064
     Dates: start: 20070829, end: 20070913

REACTIONS (3)
  - DRUG EXPOSURE DURING PREGNANCY [None]
  - LARYNGEAL DISORDER [None]
  - RESPIRATORY TRACT INFECTION [None]
